FAERS Safety Report 4577755-9 (Version None)
Quarter: 2005Q1

REPORT INFORMATION
  Report Type: 
  Country: None (occurrence: None)
  Receive Date: 20050209
  Receipt Date: 20050126
  Transmission Date: 20050727
  Serious: Yes (Death)
  Sender: FDA-Public Use
  Company Number: 2004AL000570

PATIENT
  Age: 49 Year
  Sex: Female

DRUGS (11)
  1. KADIAN [Suspect]
     Dosage: PO
     Route: 048
  2. TRAZODONE HCL [Suspect]
     Dosage: PO
     Route: 048
  3. BENZODIAZEPINE DERIVATIVES [Suspect]
     Dosage: PO
     Route: 048
  4. DIAZEPAM [Suspect]
     Dosage: PO
     Route: 048
  5. RISPERIDONE [Suspect]
     Dosage: PO
     Route: 048
  6. LEVODOPA [Suspect]
     Dosage: PO
     Route: 048
  7. CYCLOBENZAPRINE HCL [Suspect]
     Dosage: PO
     Route: 048
  8. TRIHEXYPHENIDYL HCL [Suspect]
     Dosage: PO
     Route: 048
  9. PROPOXYPHENE [Suspect]
     Dosage: PO
     Route: 048
  10. VENLAFAXINE HCL [Suspect]
     Dosage: PO
     Route: 048
  11. GABAPENTIN [Suspect]
     Dosage: PO
     Route: 048

REACTIONS (5)
  - CARDIAC ARREST [None]
  - CARDIO-RESPIRATORY ARREST [None]
  - COMPLETED SUICIDE [None]
  - OVERDOSE [None]
  - PUPIL FIXED [None]
